FAERS Safety Report 7474719-2 (Version None)
Quarter: 2011Q1

REPORT INFORMATION
  Report Type: 
  Country: None (occurrence: None)
  Receive Date: 20110302
  Receipt Date: 20100925
  Transmission Date: 20110831
  Serious: Yes (Hospitalization)
  Sender: FDA-Public Use
  Company Number: 163-21880-10050329

PATIENT
  Age: 61 Year
  Sex: Male

DRUGS (17)
  1. DOXIL [Concomitant]
  2. NIFEDICAL XL (NIFEDIPINE) [Concomitant]
  3. ZOFRAN ODT (ONDANSETRON HYDROCHLORIDE) [Concomitant]
  4. REVLIMID [Suspect]
     Indication: MULTIPLE MYELOMA
     Dosage: 10 MG, DAILY, PO; 5 MG, DAILY, PO
     Route: 048
     Dates: start: 20100901
  5. REVLIMID [Suspect]
     Indication: MULTIPLE MYELOMA
     Dosage: 10 MG, DAILY, PO; 5 MG, DAILY, PO
     Route: 048
     Dates: start: 20100402
  6. FUROSEMIDE [Concomitant]
  7. METOPROLOL TARTRATE [Concomitant]
  8. DIGOXIN [Concomitant]
  9. AREDIA [Concomitant]
  10. TEGRETOL-XR [Concomitant]
  11. LEXAPRO [Concomitant]
  12. VELCADE [Concomitant]
  13. DEXAMETHASONE [Concomitant]
  14. DILTIAZEM [Concomitant]
  15. SIMVASTATIN [Concomitant]
  16. AGGRENOX [Concomitant]
  17. OXYCODONE HCL [Concomitant]

REACTIONS (2)
  - RENAL FAILURE ACUTE [None]
  - HICCUPS [None]
